FAERS Safety Report 4382366-4 (Version None)
Quarter: 2004Q2

REPORT INFORMATION
  Report Type: 
  Country: None (occurrence: None)
  Receive Date: 20040621
  Receipt Date: 20040621
  Transmission Date: 20050107
  Serious: No
  Sender: FDA-Public Use
  Company Number: None

PATIENT
  Age: 48 Year
  Sex: Female
  Weight: 74.8435 kg

DRUGS (1)
  1. TOPAMAX [Suspect]
     Indication: MIGRAINE PROPHYLAXIS
     Dosage: 100 MG B.I.D.ORAL
     Route: 048
     Dates: start: 20011210, end: 20040620

REACTIONS (3)
  - EAR HAEMORRHAGE [None]
  - GLAUCOMA [None]
  - OTORRHOEA [None]
